FAERS Safety Report 10467309 (Version 3)
Quarter: 2014Q3

REPORT INFORMATION
  Report Type: Spontaneous
  Country: US (occurrence: US)
  Receive Date: 20140922
  Receipt Date: 20140926
  Transmission Date: 20150326
  Serious: Yes (Other)
  Sender: FDA-Public Use
  Company Number: US-TEVA-510447USA

PATIENT
  Age: 23 Year
  Sex: Female
  Weight: 39.5 kg

DRUGS (1)
  1. PARAGARD T380A [Suspect]
     Active Substance: COPPER
     Indication: CONTRACEPTION
     Route: 015
     Dates: start: 20130226, end: 20140917

REACTIONS (5)
  - Cervix haemorrhage uterine [Recovered/Resolved]
  - Uterine pain [Recovered/Resolved]
  - Embedded device [Recovered/Resolved]
  - Dyspareunia [Unknown]
  - Device dislocation [Recovered/Resolved]

NARRATIVE: CASE EVENT DATE: 20140916
